FAERS Safety Report 24318290 (Version 3)
Quarter: 2024Q4

REPORT INFORMATION
  Report Type: Report from Study
  Country: US (occurrence: US)
  Receive Date: 20240913
  Receipt Date: 20241211
  Transmission Date: 20250114
  Serious: No
  Sender: SUNOVION
  Company Number: US-SUMITOMO PHARMA SWITZERLAND GMBH-2024SPA001625

PATIENT

DRUGS (2)
  1. ORGOVYX [Suspect]
     Active Substance: RELUGOLIX
     Indication: Prostate cancer
     Dosage: 240 MG
     Route: 048
  2. ORGOVYX [Suspect]
     Active Substance: RELUGOLIX
     Dosage: 120 MG, QD
     Route: 048
     Dates: start: 20240820

REACTIONS (8)
  - Pollakiuria [Unknown]
  - Memory impairment [Unknown]
  - Hot flush [Unknown]
  - Hyperhidrosis [Unknown]
  - Middle insomnia [Unknown]
  - Weight increased [Unknown]
  - Product dose omission issue [Unknown]
  - Incorrect dose administered [Unknown]
